FAERS Safety Report 15928680 (Version 1)
Quarter: 2019Q1

REPORT INFORMATION
  Report Type: Report from Study
  Country: US (occurrence: US)
  Receive Date: 20190206
  Receipt Date: 20190206
  Transmission Date: 20190417
  Serious: Yes (Death)
  Sender: FDA-Public Use
  Company Number: US-TAIHO ONCOLOGY  INC-EU-2019-00047

PATIENT
  Sex: Female

DRUGS (17)
  1. ALLEGRA ALRG [Concomitant]
     Dates: start: 20180206
  2. ELIQUIS [Concomitant]
     Active Substance: APIXABAN
     Dates: start: 20181030
  3. MAGOX 400 [Concomitant]
     Active Substance: MAGNESIUM OXIDE
     Dates: start: 20181211
  4. ADVIL [Concomitant]
     Active Substance: IBUPROFEN
     Dates: start: 20180206
  5. BENADRYL [Concomitant]
     Active Substance: DIPHENHYDRAMINE HYDROCHLORIDE
     Dates: start: 20180206
  6. HYDROCODONE BITARTRATE AND ACETAMINOPHEN [Concomitant]
     Active Substance: ACETAMINOPHEN\HYDROCODONE BITARTRATE
     Dosage: 10-325MG
     Dates: start: 20181221
  7. MORPHINE SULFATE. [Concomitant]
     Active Substance: MORPHINE SULFATE
     Dosage: ER
     Dates: start: 20190104
  8. FLONASE ALGY [Concomitant]
     Dosage: SPRAY
     Dates: start: 20180525
  9. ELIQUIS [Concomitant]
     Active Substance: APIXABAN
     Dates: start: 20180309
  10. MONTELUKAST [Concomitant]
     Active Substance: MONTELUKAST SODIUM
     Dates: start: 20180531
  11. POT CL MICRO [Concomitant]
     Dosage: MICRO, ER
     Dates: start: 20180921
  12. AZITHROMYCIN ANHYDROUS. [Concomitant]
     Active Substance: AZITHROMYCIN ANHYDROUS
     Dates: start: 20181211
  13. FLUTICASONE. [Concomitant]
     Active Substance: FLUTICASONE
     Dosage: SPRAY
     Dates: start: 20181101
  14. PROMETHAZINE [Concomitant]
     Active Substance: PROMETHAZINE\PROMETHAZINE HYDROCHLORIDE
     Dates: start: 20180206
  15. PREDNISONE. [Concomitant]
     Active Substance: PREDNISONE
     Dates: start: 20180516
  16. LONSURF [Suspect]
     Active Substance: TIPIRACIL HYDROCHLORIDE\TRIFLURIDINE
     Indication: COLON CANCER
     Dosage: LAST CYCLE UNKNOWN
     Route: 048
     Dates: start: 20181211
  17. PANTOPRAZOLE [Concomitant]
     Active Substance: PANTOPRAZOLE
     Dates: start: 20180701

REACTIONS (3)
  - Food aversion [Not Recovered/Not Resolved]
  - Parosmia [Not Recovered/Not Resolved]
  - Nausea [Not Recovered/Not Resolved]

NARRATIVE: CASE EVENT DATE: 2018
